FAERS Safety Report 16784472 (Version 1)
Quarter: 2019Q3

REPORT INFORMATION
  Report Type: Spontaneous
  Country: FR (occurrence: FR)
  Receive Date: 20190909
  Receipt Date: 20190909
  Transmission Date: 20191005
  Serious: Yes (Other)
  Sender: FDA-Public Use
  Company Number: FR-TEVA-2019-FR-1104924

PATIENT
  Sex: Female

DRUGS (1)
  1. COPAXONE [Suspect]
     Active Substance: GLATIRAMER ACETATE
     Dosage: 20 MILLIGRAM/MILLILITERS DAILY;

REACTIONS (6)
  - Urinary tract infection staphylococcal [Unknown]
  - Urinary retention [Unknown]
  - Gait disturbance [Unknown]
  - General physical health deterioration [Unknown]
  - Nosocomial infection [Unknown]
  - Multiple sclerosis relapse [Unknown]
